FAERS Safety Report 15642040 (Version 2)
Quarter: 2018Q4

REPORT INFORMATION
  Report Type: Spontaneous
  Country: TR (occurrence: TR)
  Receive Date: 20181121
  Receipt Date: 20181128
  Transmission Date: 20190205
  Serious: Yes (Other)
  Sender: FDA-Public Use
  Company Number: TR-TEVA-2018-TR-977271

PATIENT
  Age: 45 Year
  Sex: Female

DRUGS (10)
  1. METHOTREXATE. [Suspect]
     Active Substance: METHOTREXATE
     Indication: CHORIOCARCINOMA
     Dosage: AS A PART OF 8 CYCLES OF FIRST-LINE EMA-CO REGIMEN
     Route: 065
  2. CARBOPLATIN. [Suspect]
     Active Substance: CARBOPLATIN
     Indication: CHORIOCARCINOMA
     Route: 065
  3. PACLITAXEL. [Suspect]
     Active Substance: PACLITAXEL
     Indication: CHORIOCARCINOMA
     Dosage: AS A PART OF 4 CYCLES OF SECOND-LINE CHEMOTHERAPY AND 2 CYCLES OF FOURTH-LINE TIP REGIMEN
     Route: 065
  4. ACTINOMYCIN D [Suspect]
     Active Substance: DACTINOMYCIN
     Indication: CHORIOCARCINOMA
     Dosage: AS A PART OF 8 CYCLES OF FIRST-LINE EMA-CO REGIMEN
     Route: 065
  5. CISPLATIN. [Suspect]
     Active Substance: CISPLATIN
     Indication: CHORIOCARCINOMA
     Route: 065
  6. ETOPOSIDE. [Suspect]
     Active Substance: ETOPOSIDE
     Indication: CHORIOCARCINOMA
     Route: 065
  7. BLEOMYCIN [Suspect]
     Active Substance: BLEOMYCIN SULFATE
     Indication: CHORIOCARCINOMA
     Dosage: AS A PART OF 3 CYCLES OF THIRD-LINE BEP REGIMEN
     Route: 065
  8. CYCLOPHOSPHAMIDE. [Suspect]
     Active Substance: CYCLOPHOSPHAMIDE
     Indication: CHORIOCARCINOMA
     Dosage: AS A PART OF 8 CYCLES OF FIRST-LINE EMA-CO REGIMEN
     Route: 065
  9. IFOSFAMIDE. [Suspect]
     Active Substance: IFOSFAMIDE
     Indication: CHORIOCARCINOMA
     Dosage: AS A PART OF 2 CYCLES OF FOURTH-LINE TIP REGIMEN
     Route: 065
  10. VINCRISTINE [Suspect]
     Active Substance: VINCRISTINE
     Indication: CHORIOCARCINOMA
     Dosage: AS A PART OF 8 CYCLES OF FIRST-LINE EMA-CO REGIMEN
     Route: 065

REACTIONS (1)
  - Drug ineffective [Unknown]
